FAERS Safety Report 7800071-6 (Version None)
Quarter: 2011Q4

REPORT INFORMATION
  Report Type: 
  Country: None (occurrence: None)
  Receive Date: 20111006
  Receipt Date: 20110927
  Transmission Date: 20120403
  Serious: Yes (Other)
  Sender: FDA-Public Use
  Company Number: US-ASTRAZENECA-2011SE23536

PATIENT
  Age: 59 Year
  Sex: Female
  Weight: 108.4 kg

DRUGS (13)
  1. SEROQUEL XR [Suspect]
     Indication: BIPOLAR DISORDER
     Route: 048
  2. METOPROLOL TARTRATE [Concomitant]
  3. HYDROCHLOROTHIAZIDE [Concomitant]
  4. WELLBUTRIN [Concomitant]
  5. ESTROPIPATE [Concomitant]
     Dosage: 0.625
  6. SEROQUEL XR [Suspect]
     Dosage: INCORRECTLY CUTTING 300 MILLIGRAM IN HALF TO MAKE 150 MILLIGRM DAILY
     Route: 048
  7. SEROQUEL XR [Suspect]
     Dosage: TAKING TWO 40 MILLIGRAM TO MAKE A TOTAL OF 250 MILLIGRAM INSTEAD OF 350 MILLIGRAM
     Route: 048
  8. SEROQUEL XR [Suspect]
     Route: 048
  9. MEDROXYPROGESTERONE [Concomitant]
  10. SEROQUEL XR [Suspect]
     Route: 048
  11. SEROQUEL XR [Suspect]
     Route: 048
  12. SEROQUEL XR [Suspect]
     Route: 048
  13. SEROQUEL XR [Suspect]
     Route: 048

REACTIONS (15)
  - PSYCHOTIC DISORDER [None]
  - BIPOLAR DISORDER [None]
  - PHYSICAL ASSAULT [None]
  - IMPAIRED SELF-CARE [None]
  - HYPERSOMNIA [None]
  - DEPRESSION [None]
  - INSOMNIA [None]
  - DISSOCIATION [None]
  - SEDATION [None]
  - DRUG INTOLERANCE [None]
  - DRUG DOSE OMISSION [None]
  - VICTIM OF SEXUAL ABUSE [None]
  - INCORRECT DOSE ADMINISTERED [None]
  - ABNORMAL BEHAVIOUR [None]
  - WRONG TECHNIQUE IN DRUG USAGE PROCESS [None]
